FAERS Safety Report 8921966 (Version 1)
Quarter: 2012Q4

REPORT INFORMATION
  Report Type: Spontaneous
  Country: US (occurrence: None)
  Receive Date: 20121119
  Receipt Date: 20121119
  Transmission Date: 20130627
  Serious: Yes (Other)
  Sender: FDA-Public Use
  Company Number: None

PATIENT
  Age: 53 Year
  Sex: Female
  Weight: 102.06 kg

DRUGS (1)
  1. SAVELLA [Suspect]
     Indication: FIBROMYALGIA
     Dosage: 50 mg 2x a day po
     Route: 048
     Dates: start: 20120601, end: 20121031

REACTIONS (8)
  - Suicidal ideation [None]
  - Intentional self-injury [None]
  - Scar [None]
  - Crying [None]
  - Blood pressure increased [None]
  - Irritability [None]
  - Emotional distress [None]
  - Aggression [None]
